FAERS Safety Report 10617128 (Version 1)
Quarter: 2014Q4

REPORT INFORMATION
  Report Type: Spontaneous
  Country: BE (occurrence: BE)
  Receive Date: 20141201
  Receipt Date: 20141201
  Transmission Date: 20150529
  Serious: Yes (Congenital Anomaly)
  Sender: FDA-Public Use
  Company Number: BE-MYLANLABS-2014M1012141

PATIENT

DRUGS (1)
  1. SODIUM VALPROATE [Suspect]
     Active Substance: VALPROATE SODIUM
     Indication: PRODUCT USED FOR UNKNOWN INDICATION
     Dosage: 500 MG, BID(INTERVAL:2 IN 1 DAYS)
     Route: 064

REACTIONS (10)
  - Congenital hearing disorder [Unknown]
  - Craniosynostosis [Unknown]
  - Talipes [Unknown]
  - Speech disorder developmental [Unknown]
  - Foetal exposure during pregnancy [Unknown]
  - Motor developmental delay [Unknown]
  - Atrial septal defect [Unknown]
  - Dysmorphism [Unknown]
  - Sensory loss [Unknown]
  - Joint laxity [Unknown]
